FAERS Safety Report 13197006 (Version 1)
Quarter: 2017Q1

REPORT INFORMATION
  Report Type: Spontaneous
  Country: US (occurrence: US)
  Receive Date: 20170208
  Receipt Date: 20170208
  Transmission Date: 20170428
  Serious: No
  Sender: FDA-Public Use
  Company Number: US-AMGEN-USASP2016118674

PATIENT

DRUGS (29)
  1. CYTOXAN [Concomitant]
     Active Substance: CYCLOPHOSPHAMIDE
     Indication: INVASIVE DUCTAL BREAST CARCINOMA
  2. TAMOXIFEN [Concomitant]
     Active Substance: TAMOXIFEN
     Indication: PROGESTERONE RECEPTOR ASSAY NEGATIVE
  3. TAMOXIFEN [Concomitant]
     Active Substance: TAMOXIFEN
     Indication: OESTROGEN RECEPTOR ASSAY POSITIVE
  4. NOLVADEX [Concomitant]
     Active Substance: TAMOXIFEN CITRATE
     Indication: INVASIVE DUCTAL BREAST CARCINOMA
  5. NOLVADEX [Concomitant]
     Active Substance: TAMOXIFEN CITRATE
     Indication: PROGESTERONE RECEPTOR ASSAY NEGATIVE
  6. APO-TAMOX [Concomitant]
     Active Substance: TAMOXIFEN
     Indication: INVASIVE DUCTAL BREAST CARCINOMA
  7. TAMONE [Concomitant]
     Indication: INTRADUCTAL PROLIFERATIVE BREAST LESION
     Dosage: UNK
     Dates: start: 2016
  8. NOLVADEX [Concomitant]
     Active Substance: TAMOXIFEN CITRATE
     Indication: INTRADUCTAL PROLIFERATIVE BREAST LESION
     Dosage: UNK
     Dates: start: 2016
  9. NOLVADEX [Concomitant]
     Active Substance: TAMOXIFEN CITRATE
     Indication: OESTROGEN RECEPTOR ASSAY POSITIVE
  10. APO-TAMOX [Concomitant]
     Active Substance: TAMOXIFEN
     Indication: PROGESTERONE RECEPTOR ASSAY NEGATIVE
  11. TAMONE [Concomitant]
     Indication: INVASIVE DUCTAL BREAST CARCINOMA
  12. TAMONE [Concomitant]
     Indication: OESTROGEN RECEPTOR ASSAY POSITIVE
  13. TAMONE [Concomitant]
     Indication: PROGESTERONE RECEPTOR ASSAY NEGATIVE
  14. CYTOXAN [Concomitant]
     Active Substance: CYCLOPHOSPHAMIDE
     Indication: OESTROGEN RECEPTOR ASSAY POSITIVE
  15. TAXOTERE [Concomitant]
     Active Substance: DOCETAXEL
     Indication: INTRADUCTAL PROLIFERATIVE BREAST LESION
     Dosage: UNK
     Dates: start: 20160826
  16. TAXOTERE [Concomitant]
     Active Substance: DOCETAXEL
     Indication: INVASIVE DUCTAL BREAST CARCINOMA
  17. TAXOTERE [Concomitant]
     Active Substance: DOCETAXEL
     Indication: OESTROGEN RECEPTOR ASSAY POSITIVE
  18. TAXOTERE [Concomitant]
     Active Substance: DOCETAXEL
     Indication: PROGESTERONE RECEPTOR ASSAY NEGATIVE
  19. TAMOXIFEN [Concomitant]
     Active Substance: TAMOXIFEN
     Indication: INVASIVE DUCTAL BREAST CARCINOMA
  20. TAMOFEN [Concomitant]
     Active Substance: TAMOXIFEN CITRATE
     Indication: OESTROGEN RECEPTOR ASSAY POSITIVE
  21. NEULASTA [Suspect]
     Active Substance: PEGFILGRASTIM
     Indication: PRODUCT USED FOR UNKNOWN INDICATION
     Dosage: UNK
     Route: 065
  22. APO-TAMOX [Concomitant]
     Active Substance: TAMOXIFEN
     Indication: INTRADUCTAL PROLIFERATIVE BREAST LESION
     Dosage: UNK
     Dates: start: 2016
  23. TAMOFEN [Concomitant]
     Active Substance: TAMOXIFEN CITRATE
     Indication: INTRADUCTAL PROLIFERATIVE BREAST LESION
     Dosage: UNK
     Dates: start: 2016
  24. CYTOXAN [Concomitant]
     Active Substance: CYCLOPHOSPHAMIDE
     Indication: PROGESTERONE RECEPTOR ASSAY NEGATIVE
  25. TAMOXIFEN [Concomitant]
     Active Substance: TAMOXIFEN
     Indication: INTRADUCTAL PROLIFERATIVE BREAST LESION
     Dosage: UNK
     Dates: start: 2016
  26. TAMOFEN [Concomitant]
     Active Substance: TAMOXIFEN CITRATE
     Indication: INVASIVE DUCTAL BREAST CARCINOMA
  27. TAMOFEN [Concomitant]
     Active Substance: TAMOXIFEN CITRATE
     Indication: PROGESTERONE RECEPTOR ASSAY NEGATIVE
  28. CYTOXAN [Concomitant]
     Active Substance: CYCLOPHOSPHAMIDE
     Indication: INTRADUCTAL PROLIFERATIVE BREAST LESION
     Dosage: UNK
     Dates: start: 20160826
  29. APO-TAMOX [Concomitant]
     Active Substance: TAMOXIFEN
     Indication: OESTROGEN RECEPTOR ASSAY POSITIVE

REACTIONS (3)
  - Hypersensitivity [Unknown]
  - Arthralgia [Recovered/Resolved]
  - Back pain [Recovered/Resolved]

NARRATIVE: CASE EVENT DATE: 20160826
